FAERS Safety Report 10417660 (Version 1)
Quarter: 2014Q2

REPORT INFORMATION
  Report Type: Spontaneous
  Country: US (occurrence: None)
  Receive Date: 20140609
  Receipt Date: 20140609
  Transmission Date: 20141212
  Serious: Yes (Other)
  Sender: FDA-Public Use
  Company Number: 2014TUS000937

PATIENT
  Sex: Female

DRUGS (2)
  1. BRINTELLIX [Suspect]
     Route: 048
     Dates: start: 20140131, end: 20140204
  2. ANTIDEPRESSANTS [Concomitant]

REACTIONS (1)
  - Serotonin syndrome [None]
